FAERS Safety Report 20712574 (Version 1)
Quarter: 2022Q2

REPORT INFORMATION
  Report Type: Spontaneous
  Country: PT (occurrence: PT)
  Receive Date: 20220415
  Receipt Date: 20220415
  Transmission Date: 20220721
  Serious: Yes (Other)
  Sender: FDA-Public Use
  Company Number: None

PATIENT
  Age: 64 Year
  Sex: Female
  Weight: 65 kg

DRUGS (20)
  1. COTRIMOXAZOLE [Suspect]
     Active Substance: SULFAMETHOXAZOLE\TRIMETHOPRIM
     Indication: Pneumocystis jirovecii pneumonia
     Dosage: ROUTE OF ADMINISTRATION : INTRAVENOUS, INJECTABLE SOLUTION, COTRIMOXAZOLE TEVA 400 MG/5 ML + 80 MG/5
     Route: 042
     Dates: start: 20220210, end: 20220219
  2. GANCICLOVIR [Concomitant]
     Active Substance: GANCICLOVIR
     Dosage: UNIT DOSE : 300 MG, FREQUENCY TIME :12 HOURS, STRENGTH : 300 MG, SUBSTANCE NAME: GANCICLOVIR,
     Route: 048
  3. BISOPROLOL [Concomitant]
     Active Substance: BISOPROLOL
     Dosage: STRENGTH : 25 MG, UNIT DOSE : 25 MG, FREQUENCY TIME :1 DAY, SUBSTANCE NAME : BISOPROLOL ,
     Route: 048
     Dates: start: 20220217
  4. MEROPENEM [Concomitant]
     Active Substance: MEROPENEM
     Dosage: STRENGTH : 1000 MG,UNIT DOSE :  1000 MG, FREQUENCY TIME :8 HOURS, SUBSTANCE NAME : MEROPENEM ,
     Route: 042
     Dates: start: 20220204
  5. NOREPINEPHRINE [Concomitant]
     Active Substance: NOREPINEPHRINE
     Dosage: STRENGTH : 10 MG, UNIT DOSE : 10 MG, SUBSTANCE NAME: NORADRENALINE,
     Route: 042
     Dates: start: 20220212
  6. REMIFENTANIL [Concomitant]
     Active Substance: REMIFENTANIL
     Dosage: STRENGTH :2 MG, UNIT DOSE : 2 MG, SUBSTANCE NAME: REMIFENTANIL,
     Route: 042
  7. BISACODYL [Concomitant]
     Active Substance: BISACODYL
     Dosage: STRENGTH : 10 MG, UNIT DOSE :10 MG, SUBSTANCE NAME : BISACODYL ,
     Route: 054
     Dates: start: 20220208
  8. BISACODYL [Concomitant]
     Active Substance: BISACODYL
     Dosage: SUBSTANCE NAME : BISACODYL ,UNIT DOSE :5 MG, STRENGTH : 10 MG, FREQUENCY TIME :12 HOURS
     Route: 048
     Dates: start: 20220208
  9. METHYLPREDNISOLONE [Concomitant]
     Active Substance: METHYLPREDNISOLONE
     Dosage: STRENGTH  : 40 MG, UNIT DOSE : 40 MG, FREQUENCY TIME :12 HOURS, SUBSTANCE NAME: METHYLPREDNISOLONE,
     Route: 042
  10. LEUCOVORIN CALCIUM [Concomitant]
     Active Substance: LEUCOVORIN CALCIUM
     Dosage: STRENGTH :15 MG, UNIT DOSE: 15 MG, FREQUENCY TIME :12 HOURS, SUBSTANCE NAME: CALCIUM FOLINATE,
     Route: 048
  11. FUROSEMIDE [Concomitant]
     Active Substance: FUROSEMIDE
     Dosage: STRENGTH :20 MG, UNIT DOSE: 20 MG, FREQUENCY TIME :8 HOURS, SUBSTANCE NAME : FUROSEMIDE
     Route: 042
     Dates: start: 20220216
  12. ROCURONIUM BROMIDE [Concomitant]
     Active Substance: ROCURONIUM BROMIDE
     Dosage: STRENGTH :250 MG, UNIT DOSE: 250 MG, SUBSTANCE NAME : ROCURONIUM BROMIDE
     Route: 042
     Dates: start: 20220212
  13. INSULIN HUMAN [Concomitant]
     Active Substance: INSULIN HUMAN
     Dosage: SOLUBLE, UNIT DOSE : 50 IU
     Route: 042
     Dates: start: 20220201
  14. ESOMEPRAZOLE [Concomitant]
     Active Substance: ESOMEPRAZOLE
     Dosage: STRENGTH :40 MG, UNIT DOSE: 40 MG, FREQUENCY TIME : 1 DAY, SUBSTANCE NAME: ESOMEPRAZOLE,
     Route: 042
     Dates: start: 20220207
  15. AMLODIPINE [Concomitant]
     Active Substance: AMLODIPINE BESYLATE
     Dosage: STRENGTH :5 MG, UNIT DOSE: 5 MG, FREQUENCY TIME :12 HOURS, SUBSTANCE NAME: AMLODIPINE,
     Route: 048
     Dates: start: 20220216
  16. METOCLOPRAMIDE [Concomitant]
     Active Substance: METOCLOPRAMIDE
     Dosage: STRENGTH :10 MG, UNIT DOSE: 10 MG, FREQUENCY TIME :8 HOURS, SUBSTANCE NAME: METOCLOPRAMIDE,
     Route: 042
     Dates: start: 20220213
  17. FLUCONAZOLE [Concomitant]
     Active Substance: FLUCONAZOLE
     Dosage: 50 MG + 150 MG, UNIT DOSE : 200 MG, FREQUENCY TIME :1 DAY
     Route: 048
     Dates: start: 20220207
  18. QUETIAPINE [Concomitant]
     Active Substance: QUETIAPINE
     Dosage: STRENGTH :25 MG, UNIT DOSE: 25 MG, FREQUENCY TIME : 1 DAY, SUBSTANCE NAME: QUETIAPINE,
     Dates: start: 20220209
  19. PROPOFOL [Concomitant]
     Active Substance: PROPOFOL
     Dosage: 1000 MG CONTINUOUS IV, STRENGTH :1000 MG, UNIT DOSE: 1000 MG, SUBSTANCE NAME : PROPOFOL ,
     Route: 042
     Dates: start: 20220212
  20. ENOXAPARIN SODIUM [Concomitant]
     Active Substance: ENOXAPARIN SODIUM
     Dosage: UNIT DOSE : 60 MG, FREQUENCY TIME :12 HOURS
     Dates: start: 20220210

REACTIONS (1)
  - Hyponatraemia [Recovered/Resolved]

NARRATIVE: CASE EVENT DATE: 20220210
